FAERS Safety Report 6761476-8 (Version None)
Quarter: 2010Q2

REPORT INFORMATION
  Report Type: 
  Country: None (occurrence: None)
  Receive Date: 20100607
  Receipt Date: 20100422
  Transmission Date: 20101027
  Serious: Yes (Hospitalization)
  Sender: FDA-Public Use
  Company Number: 1-18212726

PATIENT
  Age: 56 Year
  Sex: Female
  Weight: 73.9363 kg

DRUGS (4)
  1. QUININE (MANUFACTURER UNKNOWN) [Suspect]
     Indication: MUSCLE SPASMS
     Dosage: 1 CAPSULE, DAILY, ORAL
     Route: 048
     Dates: start: 20071227, end: 20080901
  2. RHO(D) IMMUNE GLOBULIN NOS [Suspect]
     Dates: start: 20080101
  3. LOTREL (BENAZEPRIL HYDROCHLORIDE AND AMLODIPINE BESYLATE) [Concomitant]
  4. PREMPRO [Concomitant]

REACTIONS (8)
  - BLOOD PRESSURE INCREASED [None]
  - CONTUSION [None]
  - ECCHYMOSIS [None]
  - FATIGUE [None]
  - JOINT SWELLING [None]
  - PETECHIAE [None]
  - THROMBOTIC THROMBOCYTOPENIC PURPURA [None]
  - WEIGHT INCREASED [None]
